FAERS Safety Report 20867527 (Version 3)
Quarter: 2022Q4

REPORT INFORMATION
  Report Type: Report from Study
  Country: US (occurrence: US)
  Receive Date: 20220524
  Receipt Date: 20221221
  Transmission Date: 20230113
  Serious: Yes (Other)
  Sender: FDA-Public Use
  Company Number: US-ABBVIE-22K-163-4406025-00

PATIENT
  Age: 60 Year
  Sex: Female

DRUGS (1)
  1. IMBRUVICA [Suspect]
     Active Substance: IBRUTINIB
     Indication: B-cell small lymphocytic lymphoma
     Route: 048
     Dates: start: 20220503

REACTIONS (8)
  - Loss of consciousness [Unknown]
  - Nephrostomy [Unknown]
  - Visual impairment [Unknown]
  - Peripheral swelling [Unknown]
  - Dizziness [Unknown]
  - Rash [Recovering/Resolving]
  - Vitreous floaters [Unknown]
  - Pain in extremity [Unknown]

NARRATIVE: CASE EVENT DATE: 20220518
